FAERS Safety Report 10289725 (Version 1)
Quarter: 2014Q3

REPORT INFORMATION
  Report Type: Spontaneous
  Country: US (occurrence: US)
  Receive Date: 20140710
  Receipt Date: 20140710
  Transmission Date: 20150326
  Serious: Yes (Other)
  Sender: FDA-Public Use
  Company Number: US-ASTRAZENECA-2014SE48576

PATIENT
  Age: 88 Year
  Sex: Female
  Weight: 56.5 kg

DRUGS (18)
  1. NEXIUM [Suspect]
     Active Substance: ESOMEPRAZOLE MAGNESIUM
     Indication: BARRETT^S OESOPHAGUS
     Route: 048
     Dates: start: 2011, end: 20140611
  2. ARICEPT [Concomitant]
     Active Substance: DONEPEZIL HYDROCHLORIDE
     Indication: MEMORY IMPAIRMENT
     Route: 048
  3. TYLENOL EXTRA STRENGTH [Concomitant]
     Active Substance: ACETAMINOPHEN
     Indication: KNEE ARTHROPLASTY
     Dosage: 1000 MG  TO 2000 MG DAILY
     Route: 048
  4. FLAX SEED [Concomitant]
     Active Substance: FLAX SEED
     Indication: CARDIAC DISORDER
     Dosage: NR DAILY
     Route: 048
  5. TEARS AGAIN HYDRATE [Concomitant]
     Active Substance: BILBERRY\LINSEED OIL\OENOTHERA BIENNIS (EVENING PRIMROSE) SEED EXTRACT
     Indication: DRY EYE
     Route: 048
  6. TRABATAN Z [Concomitant]
     Indication: GLAUCOMA
     Dosage: 2 DROPS EACH DAY DAILY IN EVENING
     Route: 050
  7. ATIVAN [Concomitant]
     Active Substance: LORAZEPAM
     Indication: INITIAL INSOMNIA
     Dosage: 1 PILL PRN BEDTIME
     Route: 048
  8. FISH OIL [Concomitant]
     Active Substance: FISH OIL
     Indication: CARDIAC DISORDER
     Dosage: NR DAILY
     Route: 048
  9. CYNTANE ULTRA DROPS [Concomitant]
     Indication: GLAUCOMA
     Dosage: 1 DROP IN EACH EYE QID
     Route: 050
  10. NAMENDA [Concomitant]
     Active Substance: MEMANTINE HYDROCHLORIDE
     Indication: MEMORY IMPAIRMENT
     Route: 048
  11. ZANTAC [Concomitant]
     Active Substance: RANITIDINE HYDROCHLORIDE
     Indication: GASTROOESOPHAGEAL REFLUX DISEASE
     Route: 048
  12. TRUSOPT [Concomitant]
     Active Substance: DORZOLAMIDE HYDROCHLORIDE
     Indication: GLAUCOMA
     Route: 050
  13. ERYTHROMYCIN. [Concomitant]
     Active Substance: ERYTHROMYCIN
     Indication: GLAUCOMA
     Dosage: IN EACH EYE HS
     Route: 050
  14. AMITIZA [Concomitant]
     Active Substance: LUBIPROSTONE
     Indication: ABDOMINAL DISCOMFORT
     Route: 048
  15. NEXIUM [Suspect]
     Active Substance: ESOMEPRAZOLE MAGNESIUM
     Indication: GASTROOESOPHAGEAL REFLUX DISEASE
     Route: 048
     Dates: start: 2011, end: 20140611
  16. LASIX [Concomitant]
     Active Substance: FUROSEMIDE
     Indication: LOCAL SWELLING
     Dosage: 40 MG 3 TIMES A WEEK
     Route: 048
  17. PRIVASTATIN [Concomitant]
     Indication: BLOOD CHOLESTEROL INCREASED
     Route: 048
  18. AMITIZA [Concomitant]
     Active Substance: LUBIPROSTONE
     Indication: CONSTIPATION
     Route: 048

REACTIONS (10)
  - Body height decreased [Unknown]
  - Barrett^s oesophagus [Unknown]
  - Tinnitus [Unknown]
  - Gastrooesophageal reflux disease [Unknown]
  - Fall [Unknown]
  - Intentional product misuse [Unknown]
  - Amnesia [Unknown]
  - Bone density increased [Unknown]
  - Head injury [Unknown]
  - Off label use [Unknown]

NARRATIVE: CASE EVENT DATE: 2011
